FAERS Safety Report 5246207-5 (Version None)
Quarter: 2007Q1

REPORT INFORMATION
  Report Type: 
  Country: None (occurrence: None)
  Receive Date: 20070220
  Receipt Date: 20070205
  Transmission Date: 20070707
  Serious: Yes (Hospitalization)
  Sender: FDA-Public Use
  Company Number: 2005JP002222

PATIENT
  Age: 59 Year
  Sex: Female

DRUGS (5)
  1. PROGRAF [Suspect]
     Indication: RENAL TRANSPLANT
     Dosage: 4 MG, D, 3 MG, D
  2. CELLCEPT [Concomitant]
  3. METHYLPREDNISOLONE [Concomitant]
  4. METHYLPREDNISOLONE (METHYLPREDNISOLONE) FORMULATION UNKNOWN [Concomitant]
  5. SIMULECT [Concomitant]

REACTIONS (2)
  - HAEMOLYTIC ANAEMIA [None]
  - IMMUNE SYSTEM DISORDER [None]
